FAERS Safety Report 6694035-6 (Version None)
Quarter: 2010Q2

REPORT INFORMATION
  Report Type: 
  Country: None (occurrence: None)
  Receive Date: 20100423
  Receipt Date: 20100414
  Transmission Date: 20101027
  Serious: Yes (Other)
  Sender: FDA-Public Use
  Company Number: US-BAYER-201014281BCC

PATIENT
  Age: 84 Year
  Sex: Male
  Weight: 66 kg

DRUGS (2)
  1. PHILLIPS' MILK OF MAGNESIA CHERRY [Suspect]
     Indication: CONSTIPATION
     Dosage: TOTAL DAILY DOSE: 2 TO 3 TABLESPOONS
     Route: 048
     Dates: start: 20100411
  2. KLONOPIN [Concomitant]
     Route: 065

REACTIONS (2)
  - DYSURIA [None]
  - HAEMATOCHEZIA [None]
